FAERS Safety Report 9763704 (Version 1)
Quarter: 2013Q4

REPORT INFORMATION
  Report Type: Spontaneous
  Country: US (occurrence: US)
  Receive Date: 20131216
  Receipt Date: 20131216
  Transmission Date: 20140711
  Serious: No
  Sender: FDA-Public Use
  Company Number: US-BIOGENIDEC-2013BI113872

PATIENT
  Sex: Female
  Weight: 116 kg

DRUGS (4)
  1. TECFIDERA [Suspect]
     Indication: PRODUCT USED FOR UNKNOWN INDICATION
     Route: 048
  2. PROVIGIL [Concomitant]
  3. LEXAPRO [Concomitant]
  4. BACLOFEN [Concomitant]

REACTIONS (2)
  - Paraesthesia [Unknown]
  - Abdominal pain upper [Unknown]
